FAERS Safety Report 19115544 (Version 1)
Quarter: 2021Q2

REPORT INFORMATION
  Report Type: Other
  Country: TW (occurrence: TW)
  Receive Date: 20210409
  Receipt Date: 20210409
  Transmission Date: 20210717
  Serious: Yes (Other)
  Sender: FDA-Public Use
  Company Number: TW-EMD SERONO-9229943

PATIENT
  Age: 17 Year
  Sex: Female

DRUGS (1)
  1. INTERFERON BETA?1A [Suspect]
     Active Substance: INTERFERON BETA-1A
     Indication: RELAPSING-REMITTING MULTIPLE SCLEROSIS

REACTIONS (3)
  - Substance-induced psychotic disorder [Recovering/Resolving]
  - Hallucination, auditory [Recovering/Resolving]
  - Delusion [Recovering/Resolving]
